FAERS Safety Report 23774193 (Version 1)
Quarter: 2024Q2

REPORT INFORMATION
  Report Type: Spontaneous
  Country: NL (occurrence: NL)
  Receive Date: 20240423
  Receipt Date: 20240423
  Transmission Date: 20240715
  Serious: Yes (Hospitalization)
  Sender: FDA-Public Use
  Company Number: None

PATIENT
  Age: 68 Year
  Sex: Male
  Weight: 85 kg

DRUGS (4)
  1. SPIRONOLACTONE [Suspect]
     Active Substance: SPIRONOLACTONE
     Indication: Cardiac failure
     Dosage: BRAND NAME NOT SPECIFIED, 1 TABLET ONCE EVERY 2 DAYS
     Route: 065
     Dates: start: 20231128
  2. CALCIUM [Concomitant]
     Active Substance: CALCIUM
     Indication: Product used for unknown indication
     Dosage: DOSAGE: 100 MG/ML CALCIUM GLUCON, BRAND NAME NOT SPECIFIED
     Route: 065
  3. INSULIN NOS [Concomitant]
     Active Substance: INSULIN NOS
     Indication: Product used for unknown indication
     Dosage: INJECTION/INFUSION, 1 UNIT PER UNIT, BRAND NAME NOT SPECIFIED
     Route: 065
  4. SODIUM POLYSTYRENE SULFONATE [Concomitant]
     Active Substance: SODIUM POLYSTYRENE SULFONATE
     Indication: Product used for unknown indication
     Dosage: POLYSTYRENE SULFONE AFTER PDR SUSP, SACHET (POWDER), 999.34 MG/G (MILLIGRAM PER GRAM)
     Route: 065

REACTIONS (1)
  - Hyperkalaemia [Recovering/Resolving]
